FAERS Safety Report 16922832 (Version 4)
Quarter: 2023Q4

REPORT INFORMATION
  Report Type: Report from Study
  Country: ES (occurrence: ES)
  Receive Date: 20191016
  Receipt Date: 20231024
  Transmission Date: 20240109
  Serious: Yes (Hospitalization)
  Sender: FDA-Public Use
  Company Number: None

PATIENT
  Age: 88 Year
  Sex: Male

DRUGS (6)
  1. ATORVASTATIN [Interacting]
     Active Substance: ATORVASTATIN
     Indication: Dyslipidaemia
     Dosage: 20 MILLIGRAM DAILY; ATORVASTATINA (7400A)
     Route: 048
     Dates: start: 20160722, end: 20180411
  2. LOSARTAN [Interacting]
     Active Substance: LOSARTAN
     Indication: Hypertension
     Dosage: 100 MILLIGRAM DAILY; LOSARTAN (7157A)
     Route: 048
     Dates: start: 20150410, end: 20180411
  3. LINAGLIPTIN [Interacting]
     Active Substance: LINAGLIPTIN
     Indication: Diabetes mellitus
     Dosage: 5 MILLIGRAM DAILY; 30 TABLETS
     Route: 048
     Dates: start: 20170608, end: 20180411
  4. HUMALOG MIX75/25 [Interacting]
     Active Substance: INSULIN LISPRO
     Indication: Diabetes mellitus
     Dosage: 96 IU (INTERNATIONAL UNIT) DAILY; KWIKPEN, 5 PRE-FILLED PENS OF 3 ML
     Route: 058
     Dates: start: 20171207, end: 20180411
  5. FUROSEMIDE [Concomitant]
     Active Substance: FUROSEMIDE
     Indication: Hypertension
     Dosage: 40 MILLIGRAM DAILY; FUROSEMIDA (1615A)
     Route: 048
     Dates: start: 20160722, end: 20180418
  6. AMLODIPINE [Concomitant]
     Active Substance: AMLODIPINE BESYLATE
     Indication: Hypertension
     Dosage: 10 MILLIGRAM DAILY; AMLODIPINO (2503A)
     Route: 048

REACTIONS (2)
  - Hypoglycaemia [Recovered/Resolved]
  - Drug interaction [Unknown]

NARRATIVE: CASE EVENT DATE: 20180409
